FAERS Safety Report 6122005-5 (Version None)
Quarter: 2009Q1

REPORT INFORMATION
  Report Type: 
  Country: None (occurrence: None)
  Receive Date: 20090316
  Receipt Date: 20090305
  Transmission Date: 20090719
  Serious: Yes (Death)
  Sender: FDA-Public Use
  Company Number: US025513

PATIENT
  Sex: Male

DRUGS (1)
  1. FENTORA [Suspect]
     Indication: MIGRAINE
     Dosage: UNK BUCCAL
     Route: 002

REACTIONS (2)
  - CONTRAINDICATION TO MEDICAL TREATMENT [None]
  - DRUG PRESCRIBING ERROR [None]
